FAERS Safety Report 8391124-5 (Version None)
Quarter: 2012Q2

REPORT INFORMATION
  Report Type: 
  Country: None (occurrence: None)
  Receive Date: 20120517
  Receipt Date: 20120504
  Transmission Date: 20120825
  Serious: Yes (Hospitalization, Other)
  Sender: FDA-Public Use
  Company Number: DSA_56128_2012

PATIENT
  Sex: Male

DRUGS (47)
  1. ELIDEL [Suspect]
     Indication: ECZEMA
     Dosage: (DF TOPICAL)
     Route: 061
     Dates: start: 20050412, end: 20070201
  2. ZANAFLEX [Concomitant]
  3. PREVACID [Concomitant]
  4. PHENAZOPYRIDINE HCL TAB [Concomitant]
  5. RADIATION THERAPY [Concomitant]
  6. PROMETHAZINE [Concomitant]
  7. METRONIDAZOLE [Concomitant]
  8. OXYCODONE/APAP /01601701/ [Concomitant]
  9. AMOXICILLIN AND CLAVULANATE POTASSIUM [Concomitant]
  10. CHEMOTHERAPEUTICS NOS [Concomitant]
  11. LYRICA [Concomitant]
  12. PROCHLORPERAZINE [Concomitant]
  13. LORAZEPAM [Concomitant]
  14. LEVAQUIN [Concomitant]
  15. KETOCONAZOLE [Concomitant]
  16. DACARBAZINE [Concomitant]
  17. DIPHENHYDRAMINE HCL [Concomitant]
  18. NAPROXEN (ALEVE) [Concomitant]
  19. CELEBREX [Concomitant]
  20. AUGMENTIN '125' [Concomitant]
  21. ULTRAM [Concomitant]
  22. SYNTHROID [Concomitant]
  23. ENTEX PSE [Concomitant]
  24. CIPROFLOXACIN [Concomitant]
  25. CILOXAN [Concomitant]
  26. DOCUSATE SODIUM [Concomitant]
  27. DESONIDE [Concomitant]
  28. DARVOCET-N 50 [Concomitant]
  29. VINBLASTINE SULFATE [Concomitant]
  30. COLACE [Concomitant]
  31. AMOXCILLIN [Concomitant]
  32. BLEOMYCIN SULFATE [Concomitant]
  33. ZOLPIDEM [Concomitant]
  34. MORPHINE SULFATE [Concomitant]
  35. NALOXONE [Concomitant]
  36. ONDANSETRON [Concomitant]
  37. ATIVAN [Concomitant]
  38. COMPAZINE /00013304/ [Concomitant]
  39. NEULASTA [Concomitant]
  40. OXYCODONE HYDROCHLORIDE [Concomitant]
  41. LIDODERM [Concomitant]
  42. IBUPROFEN [Concomitant]
  43. ADRIAMYCIN PFS [Concomitant]
  44. PIPERACILLIN AND TAZOBACTAM [Concomitant]
  45. MAGNESIUM HYDROXIDE TAB [Concomitant]
  46. HYDROMORPHONE HCL [Concomitant]
  47. PERCOCET [Concomitant]

REACTIONS (48)
  - CONDITION AGGRAVATED [None]
  - ABDOMINAL PAIN [None]
  - IMPLANT SITE INFECTION [None]
  - STOMATITIS [None]
  - DIARRHOEA [None]
  - ANIMAL BITE [None]
  - DYSPNOEA EXERTIONAL [None]
  - ARTHRALGIA [None]
  - ACUTE SINUSITIS [None]
  - CHONDROMALACIA [None]
  - INTERVERTEBRAL DISC PROTRUSION [None]
  - LYMPHADENOPATHY MEDIASTINAL [None]
  - NAUSEA [None]
  - MENISCUS LESION [None]
  - INJURY [None]
  - ABDOMINAL HERNIA [None]
  - NEUROENDOCRINE CARCINOMA [None]
  - METASTATIC NEOPLASM [None]
  - DIVERTICULUM [None]
  - DYSPHONIA [None]
  - HODGKIN'S DISEASE [None]
  - INTERVERTEBRAL DISC DEGENERATION [None]
  - DECREASED APPETITE [None]
  - PURULENCE [None]
  - MUSCLE TIGHTNESS [None]
  - CHEST PAIN [None]
  - DERMATITIS CONTACT [None]
  - LIGAMENT SPRAIN [None]
  - BRONCHITIS [None]
  - CONJUNCTIVITIS [None]
  - SCOLIOSIS [None]
  - THYROID MASS [None]
  - SINUS DISORDER [None]
  - PROSTATOMEGALY [None]
  - CELLULITIS [None]
  - CORNEAL ABRASION [None]
  - NECK PAIN [None]
  - MUSCULOSKELETAL STIFFNESS [None]
  - ACCIDENT AT WORK [None]
  - KYPHOSIS [None]
  - APPENDICECTOMY [None]
  - VOMITING [None]
  - FALL [None]
  - OROPHARYNGEAL PAIN [None]
  - DYSPHAGIA [None]
  - HEPATIC CYST [None]
  - RADIATION OESOPHAGITIS [None]
  - POSTOPERATIVE WOUND INFECTION [None]
